FAERS Safety Report 9942685 (Version 1)
Quarter: 2014Q1

REPORT INFORMATION
  Report Type: Report from Study
  Country: US (occurrence: US)
  Receive Date: 20140303
  Receipt Date: 20140303
  Transmission Date: 20141002
  Serious: No
  Sender: FDA-Public Use
  Company Number: US-ABBVIE-13P-163-1045480-00

PATIENT
  Age: 40 Year
  Sex: Female

DRUGS (6)
  1. HUMIRA [Suspect]
     Indication: PUSTULAR PSORIASIS
     Dosage: LOADING DOSE
     Dates: start: 20130202
  2. HUMIRA [Suspect]
  3. SINGULAIR [Concomitant]
     Indication: HYPERSENSITIVITY
     Dosage: 10MG DAILY
  4. NEXIUM [Concomitant]
     Indication: GASTROOESOPHAGEAL REFLUX DISEASE
     Dosage: 40MG DAILY
  5. MENEST [Concomitant]
     Indication: HORMONE REPLACEMENT THERAPY
     Dosage: 0.625MG DAILY
  6. SORIATANE [Concomitant]
     Indication: PSORIASIS

REACTIONS (4)
  - Musculoskeletal pain [Recovered/Resolved]
  - Palpitations [Recovered/Resolved]
  - Migraine [Not Recovered/Not Resolved]
  - Weight decreased [Not Recovered/Not Resolved]
